FAERS Safety Report 5310248-X (Version None)
Quarter: 2007Q2

REPORT INFORMATION
  Report Type: 
  Country: None (occurrence: None)
  Receive Date: 20070427
  Receipt Date: 20070424
  Transmission Date: 20071010
  Serious: Yes (Life-Threatening)
  Sender: FDA-Public Use
  Company Number: GB-BRISTOL-MYERS SQUIBB COMPANY-13759386

PATIENT
  Age: 67 Year
  Sex: Male
  Weight: 56 kg

DRUGS (5)
  1. AMPHOTERICIN B [Suspect]
     Indication: CANDIDA SEPSIS
     Route: 042
     Dates: start: 20070407
  2. ABELCET [Suspect]
     Indication: CANDIDA SEPSIS
     Route: 042
     Dates: start: 20070408, end: 20070101
  3. PARACETAMOL [Concomitant]
     Route: 048
  4. GENTAMICIN SULFATE [Concomitant]
     Indication: BACTERAEMIA
     Route: 042
     Dates: start: 20070406, end: 20070406
  5. TEICOPLANIN [Concomitant]
     Indication: BACTERAEMIA
     Route: 042
     Dates: start: 20070406, end: 20070406

REACTIONS (4)
  - CHILLS [None]
  - CHOKING SENSATION [None]
  - HYPERTENSION [None]
  - TACHYCARDIA [None]
